FAERS Safety Report 7374966-4 (Version None)
Quarter: 2011Q1

REPORT INFORMATION
  Report Type: 
  Country: None (occurrence: None)
  Receive Date: 20110325
  Receipt Date: 20110311
  Transmission Date: 20110831
  Serious: Yes (Other)
  Sender: FDA-Public Use
  Company Number: PHHY2010BR52558

PATIENT
  Sex: Female

DRUGS (3)
  1. DIOVAN [Suspect]
     Dosage: 320 MG,UNK
  2. ATENOLOL [Suspect]
     Dosage: 100 MG, UNK
  3. CAPTOPRIL [Suspect]
     Dosage: UNK

REACTIONS (1)
  - HYPERTENSION [None]
